FAERS Safety Report 9720806 (Version 2)
Quarter: 2013Q4

REPORT INFORMATION
  Report Type: Spontaneous
  Country: FR (occurrence: FR)
  Receive Date: 20131129
  Receipt Date: 20131129
  Transmission Date: 20140711
  Serious: Yes (Other)
  Sender: FDA-Public Use
  Company Number: PHHY2013FR132620

PATIENT
  Age: 72 Year
  Sex: Female

DRUGS (1)
  1. TRAMADOL SANDOZ [Suspect]
     Dosage: 1 DF, QD

REACTIONS (9)
  - Head injury [Recovered/Resolved]
  - Fall [Recovered/Resolved]
  - Malaise [Recovered/Resolved]
  - Burning sensation [Recovered/Resolved]
  - Dizziness [Unknown]
  - Hyperhidrosis [Unknown]
  - Tremor [Unknown]
  - Headache [Unknown]
  - Vomiting [Unknown]
